FAERS Safety Report 23267467 (Version 1)
Quarter: 2023Q4

REPORT INFORMATION
  Report Type: Spontaneous
  Country: KR (occurrence: KR)
  Receive Date: 20231206
  Receipt Date: 20231206
  Transmission Date: 20240110
  Serious: Yes (Hospitalization, Other)
  Sender: FDA-Public Use
  Company Number: None

PATIENT
  Sex: Female
  Weight: 50 kg

DRUGS (4)
  1. KEPPRA [Suspect]
     Active Substance: LEVETIRACETAM
     Indication: Subarachnoid haemorrhage
     Dosage: 1 DOSAGE FORM, 2X/DAY (BID)
     Route: 048
     Dates: start: 20220820, end: 20220907
  2. KEPPRA [Suspect]
     Active Substance: LEVETIRACETAM
     Indication: Off label use
  3. VANCOMYCIN HYDROCHLORIDE [Suspect]
     Active Substance: VANCOMYCIN HYDROCHLORIDE
     Indication: Subarachnoid haemorrhage
     Dosage: 1 DOSAGE FORM ONE DAY
     Route: 042
     Dates: start: 20220828, end: 20220907
  4. MEROPENEM SODIUM CARBONATE [Suspect]
     Active Substance: MEROPENEM SODIUM CARBONATE
     Indication: Subarachnoid haemorrhage
     Dosage: 2 DOSAGE FORM, 2X/DAY (BID)
     Route: 042
     Dates: start: 20220715, end: 20220907

REACTIONS (2)
  - Thrombocytopenia [Recovering/Resolving]
  - Off label use [Unknown]

NARRATIVE: CASE EVENT DATE: 20220901
